FAERS Safety Report 7535568-X (Version None)
Quarter: 2011Q2

REPORT INFORMATION
  Report Type: 
  Country: None (occurrence: None)
  Receive Date: 20110609
  Receipt Date: 20110601
  Transmission Date: 20111010
  Serious: Yes (Other)
  Sender: FDA-Public Use
  Company Number: CN-JNJFOC-20110600747

PATIENT
  Age: 5 Month
  Sex: Male

DRUGS (2)
  1. CHILDREN'S TYLENOL SUSPENSION [Suspect]
     Route: 048
  2. CHILDREN'S TYLENOL SUSPENSION [Suspect]
     Indication: PYREXIA
     Dosage: 15ML= 1500MG
     Route: 048
     Dates: start: 20110531, end: 20110531

REACTIONS (1)
  - ACCIDENTAL OVERDOSE [None]
